FAERS Safety Report 13416641 (Version 5)
Quarter: 2017Q2

REPORT INFORMATION
  Report Type: Spontaneous
  Country: US (occurrence: US)
  Receive Date: 20170407
  Receipt Date: 20170627
  Transmission Date: 20170830
  Serious: Yes (Other)
  Sender: FDA-Public Use
  Company Number: US-JNJFOC-20170334533

PATIENT
  Sex: Female

DRUGS (3)
  1. INVEGA SUSTENNA [Suspect]
     Active Substance: PALIPERIDONE PALMITATE
     Indication: BIPOLAR DISORDER
     Route: 030
  2. CLOZAPINE. [Suspect]
     Active Substance: CLOZAPINE
     Indication: PRODUCT USED FOR UNKNOWN INDICATION
     Route: 065
  3. INVEGA SUSTENNA [Suspect]
     Active Substance: PALIPERIDONE PALMITATE
     Indication: BIPOLAR DISORDER
     Route: 030
     Dates: start: 201609

REACTIONS (12)
  - Joint range of motion decreased [Unknown]
  - Restlessness [Unknown]
  - Product use in unapproved indication [Unknown]
  - Vomiting [Unknown]
  - Adverse drug reaction [Recovering/Resolving]
  - Dementia [Unknown]
  - Hallucination [Unknown]
  - Off label use [Unknown]
  - Overdose [Unknown]
  - Pyrexia [Unknown]
  - Drug hypersensitivity [Recovering/Resolving]
  - Inappropriate schedule of drug administration [Unknown]

NARRATIVE: CASE EVENT DATE: 2016
